FAERS Safety Report 14413745 (Version 1)
Quarter: 2018Q1

REPORT INFORMATION
  Report Type: Spontaneous
  Country: US (occurrence: US)
  Receive Date: 20180119
  Receipt Date: 20180119
  Transmission Date: 20180509
  Serious: Yes (Other)
  Sender: FDA-Public Use
  Company Number: US-GILEAD-2018-0316572

PATIENT
  Age: 29 Year
  Sex: Male

DRUGS (1)
  1. COMPLERA [Suspect]
     Active Substance: EMTRICITABINE\RILPIVIRINE HYDROCHLORIDE\TENOFOVIR DISOPROXIL FUMARATE
     Indication: HIV INFECTION
     Dosage: UNK
     Route: 065
     Dates: start: 201202

REACTIONS (4)
  - Stress fracture [Unknown]
  - Osteoporosis [Unknown]
  - Stress fracture [Recovered/Resolved]
  - Osteopenia [Unknown]

NARRATIVE: CASE EVENT DATE: 201202
